FAERS Safety Report 10195430 (Version 1)
Quarter: 2014Q2

REPORT INFORMATION
  Report Type: Spontaneous
  Country: GB (occurrence: GB)
  Receive Date: 20140526
  Receipt Date: 20140526
  Transmission Date: 20141212
  Serious: Yes (Other)
  Sender: FDA-Public Use
  Company Number: PHHY2014GB062207

PATIENT
  Age: 60 Year
  Sex: Male
  Weight: 119 kg

DRUGS (2)
  1. TRAMADOL [Suspect]
     Dates: start: 20140501
  2. EPILIM [Suspect]

REACTIONS (2)
  - Convulsion [Recovered/Resolved]
  - Drug interaction [Unknown]
